FAERS Safety Report 23996064 (Version 1)
Quarter: 2024Q2

REPORT INFORMATION
  Report Type: Spontaneous
  Country: US (occurrence: US)
  Receive Date: 20240620
  Receipt Date: 20240620
  Transmission Date: 20240715
  Serious: No
  Sender: FDA-Public Use
  Company Number: US-ROCHE-10000002256

PATIENT
  Sex: Male

DRUGS (1)
  1. HEMLIBRA [Suspect]
     Active Substance: EMICIZUMAB-KXWH
     Indication: Factor VIII deficiency
     Dosage: 300MG AND 96MG EVERY OTHER WEEK SUBCUTANEOUSLY .(105MG/7ML:STRENTGH)
     Route: 058

REACTIONS (3)
  - Haemorrhage [Unknown]
  - Joint swelling [Unknown]
  - Limb discomfort [Unknown]
